FAERS Safety Report 9688026 (Version 1)
Quarter: 2013Q4

REPORT INFORMATION
  Report Type: Spontaneous
  Country: US (occurrence: None)
  Receive Date: 20131113
  Receipt Date: 20131113
  Transmission Date: 20140711
  Serious: Yes (Hospitalization)
  Sender: FDA-Public Use
  Company Number: None

PATIENT
  Age: 54 Year
  Sex: Male

DRUGS (2)
  1. MOTRIN [Suspect]
     Dates: start: 20110701, end: 20111116
  2. RANITIDINE [Suspect]
     Dates: start: 20110701, end: 20111116

REACTIONS (6)
  - Drug-induced liver injury [None]
  - Abdominal pain [None]
  - Nausea [None]
  - Vomiting [None]
  - Hepatitis C antibody positive [None]
  - Hepatitis B antibody positive [None]
